FAERS Safety Report 7927069-1 (Version None)
Quarter: 2011Q4

REPORT INFORMATION
  Report Type: 
  Country: None (occurrence: None)
  Receive Date: 20111118
  Receipt Date: 20111107
  Transmission Date: 20120403
  Serious: Yes (Hospitalization)
  Sender: FDA-Public Use
  Company Number: JP-EISAI INC-E7389-01623-CLI-JP

PATIENT
  Sex: Female
  Weight: 40 kg

DRUGS (24)
  1. TPN ELECTROLYTES IN PLASTIC CONTAINER [Concomitant]
  2. MEDROXYPROGESTERONE ACETATE [Concomitant]
     Indication: BREAST CANCER RECURRENT
     Dates: start: 20100603
  3. GRANISETRON [Concomitant]
     Indication: PROPHYLAXIS
  4. HALAVEN [Suspect]
  5. FUROSEMIDE [Concomitant]
  6. DECADRON [Concomitant]
     Indication: PROPHYLAXIS
  7. LANSOPRAZOLE [Concomitant]
     Indication: PROPHYLAXIS
     Route: 048
  8. ELIETEN [Concomitant]
     Indication: PROPHYLAXIS
     Route: 048
  9. AZUNOL [Concomitant]
     Indication: PROPHYLAXIS
  10. HALAVEN [Suspect]
     Indication: BREAST CANCER RECURRENT
     Dates: start: 20110804
  11. HALAVEN [Suspect]
     Indication: METASTASES TO LIVER
  12. CELESTAMINE TAB [Concomitant]
     Indication: PROPHYLAXIS
     Route: 048
  13. ZOMETA [Concomitant]
     Indication: METASTASES TO BONE
  14. LOXOMARIN [Concomitant]
     Route: 048
  15. CODEINE PHOSPHATE HYDRATE [Concomitant]
     Route: 048
  16. HALAVEN [Suspect]
     Indication: METASTASES TO LUNG
  17. MEDROXYPROGESTERONE ACETATE [Concomitant]
  18. PRECOAT [Concomitant]
     Route: 048
  19. HALAVEN [Suspect]
     Indication: METASTASES TO BONE
  20. PACIF [Concomitant]
     Route: 048
  21. FAMOTIDINE [Concomitant]
     Indication: PROPHYLAXIS
  22. NEOPHAGEN [Concomitant]
     Indication: PROPHYLAXIS
  23. PHENYTOIN SODIUM CAP [Concomitant]
     Indication: PROPHYLAXIS
     Route: 048
  24. GLYCEOL [Concomitant]

REACTIONS (5)
  - LEUKOPENIA [None]
  - NEUTROPENIA [None]
  - LYMPHOPENIA [None]
  - PNEUMONIA [None]
  - FEBRILE NEUTROPENIA [None]
